FAERS Safety Report 12584307 (Version 2)
Quarter: 2016Q4

REPORT INFORMATION
  Report Type: Spontaneous
  Country: FR (occurrence: FR)
  Receive Date: 20160722
  Receipt Date: 20161003
  Transmission Date: 20170207
  Serious: Yes (Hospitalization)
  Sender: FDA-Public Use
  Company Number: FR-PFIZER INC-2016349394

PATIENT
  Age: 85 Year
  Sex: Male

DRUGS (6)
  1. XANAX [Suspect]
     Active Substance: ALPRAZOLAM
     Dosage: 0.25 MG, DAILY
     Route: 048
  2. COVERSYL /00790702/ [Suspect]
     Active Substance: PERINDOPRIL
     Dosage: 10 MG, DAILY
     Route: 048
  3. XATRAL [Suspect]
     Active Substance: ALFUZOSIN
     Dosage: 10 MG, DAILY
  4. TAHOR [Suspect]
     Active Substance: ATORVASTATIN CALCIUM
     Dosage: 20 MG, DAILY
     Route: 048
  5. DUOPLAVIN [Suspect]
     Active Substance: ASPIRIN\CLOPIDOGREL
     Dosage: 1 DF, DAILY
     Route: 048
  6. TEMERIT [Suspect]
     Active Substance: NEBIVOLOL
     Dosage: 2.5 MG, DAILY
     Route: 048

REACTIONS (2)
  - Inappropriate antidiuretic hormone secretion [Recovered/Resolved]
  - Hyponatraemia [Recovered/Resolved]

NARRATIVE: CASE EVENT DATE: 2016
